FAERS Safety Report 24216717 (Version 1)
Quarter: 2024Q3

REPORT INFORMATION
  Report Type: Spontaneous
  Country: CA (occurrence: CA)
  Receive Date: 20240816
  Receipt Date: 20240816
  Transmission Date: 20241017
  Serious: Yes (Hospitalization, Other)
  Sender: BAYER
  Company Number: CA-BAYER-2024A112603

PATIENT
  Age: 28 Year
  Sex: Female

DRUGS (1)
  1. KYLEENA [Suspect]
     Active Substance: LEVONORGESTREL
     Indication: Heavy menstrual bleeding
     Dosage: 17.5?G/DAY
     Route: 015
     Dates: start: 20190202, end: 20231013

REACTIONS (16)
  - Uterine perforation [Not Recovered/Not Resolved]
  - Hypovolaemic shock [Recovered/Resolved]
  - Vaginal haemorrhage [Recovering/Resolving]
  - Pelvic inflammatory disease [None]
  - Syncope [None]
  - Sepsis [None]
  - Chest pain [Not Recovered/Not Resolved]
  - Arrhythmia [None]
  - Hot flush [Not Recovered/Not Resolved]
  - Weight increased [Not Recovered/Not Resolved]
  - Amenorrhoea [None]
  - Back pain [None]
  - Tremor [None]
  - Lethargy [None]
  - Cold sweat [None]
  - Hypomenorrhoea [None]

NARRATIVE: CASE EVENT DATE: 20190101
